FAERS Safety Report 7353937-8 (Version None)
Quarter: 2011Q1

REPORT INFORMATION
  Report Type: 
  Country: None (occurrence: None)
  Receive Date: 20110315
  Receipt Date: 20110301
  Transmission Date: 20110831
  Serious: Yes (Other)
  Sender: FDA-Public Use
  Company Number: PHHY2011DE17472

PATIENT
  Sex: Female

DRUGS (2)
  1. LEVOTHYROXINE [Concomitant]
     Indication: HYPOTHYROIDISM
     Route: 048
     Dates: start: 20070101
  2. FEMARA [Suspect]
     Indication: BREAST CANCER
     Dosage: 2.5 MG, QD
     Route: 048
     Dates: start: 20060515, end: 20070808

REACTIONS (6)
  - DYSPNOEA [None]
  - HYPERHIDROSIS [None]
  - GENERAL PHYSICAL HEALTH DETERIORATION [None]
  - SLEEP DISORDER [None]
  - FATIGUE [None]
  - VISUAL IMPAIRMENT [None]
